FAERS Safety Report 9571277 (Version 1)
Quarter: 2013Q4

REPORT INFORMATION
  Report Type: Spontaneous
  Country: US (occurrence: US)
  Receive Date: 20131001
  Receipt Date: 20131001
  Transmission Date: 20140711
  Serious: Yes (Death, Hospitalization)
  Sender: FDA-Public Use
  Company Number: US-ASTELLAS-2013US010152

PATIENT
  Age: 55 Year
  Sex: Male

DRUGS (2)
  1. PROGRAF [Suspect]
     Indication: RENAL TRANSPLANT
     Dosage: 1 MG, UID/QD
     Route: 048
     Dates: start: 20030313, end: 20130920
  2. CELLCEPT                           /01275104/ [Concomitant]
     Indication: RENAL TRANSPLANT
     Dosage: 500 MG, UID/QD
     Route: 048
     Dates: start: 20030313, end: 20130920

REACTIONS (1)
  - Death [Fatal]
